FAERS Safety Report 13460713 (Version 3)
Quarter: 2017Q2

REPORT INFORMATION
  Report Type: Report from Study
  Country: None (occurrence: PR)
  Receive Date: 20170420
  Receipt Date: 20170630
  Transmission Date: 20170830
  Serious: Yes (Hospitalization, Other)
  Sender: FDA-Public Use
  Company Number: PR-ABBVIE-17K-131-1947495-00

PATIENT
  Sex: Female

DRUGS (5)
  1. FOLIC ACID. [Concomitant]
     Active Substance: FOLIC ACID
     Indication: VITAMIN SUPPLEMENTATION
     Route: 048
     Dates: start: 2016
  2. NEURONTIN [Suspect]
     Active Substance: GABAPENTIN
     Indication: FIBROMYALGIA
     Route: 048
     Dates: start: 201609
  3. LEVAQUIN [Suspect]
     Active Substance: LEVOFLOXACIN
     Indication: PRODUCT USED FOR UNKNOWN INDICATION
     Route: 065
     Dates: start: 2015
  4. HUMIRA [Suspect]
     Active Substance: ADALIMUMAB
     Indication: RHEUMATOID ARTHRITIS
     Route: 058
     Dates: start: 2010, end: 2010
  5. LEVAQUIN [Suspect]
     Active Substance: LEVOFLOXACIN
     Route: 065
     Dates: start: 201703

REACTIONS (33)
  - Headache [Recovered/Resolved]
  - Drug hypersensitivity [Recovered/Resolved]
  - Bronchitis [Recovered/Resolved]
  - Eye inflammation [Not Recovered/Not Resolved]
  - Ankylosing spondylitis [Not Recovered/Not Resolved]
  - Pruritus allergic [Recovered/Resolved]
  - Nausea [Recovered/Resolved]
  - Arrhythmia [Not Recovered/Not Resolved]
  - Hypersensitivity [Recovered/Resolved]
  - Asphyxia [Recovered/Resolved]
  - Palpitations [Recovered/Resolved]
  - Urticaria [Recovered/Resolved]
  - Urticaria [Recovered/Resolved]
  - Headache [Recovered/Resolved]
  - Memory impairment [Not Recovered/Not Resolved]
  - Inflammatory marker increased [Not Recovered/Not Resolved]
  - Gastrointestinal hypomotility [Recovered/Resolved]
  - Palpitations [Recovered/Resolved]
  - Pruritus allergic [Recovered/Resolved]
  - Anaemia [Not Recovered/Not Resolved]
  - Dizziness [Recovered/Resolved]
  - Inflammation [Recovered/Resolved]
  - Pulmonary mass [Unknown]
  - Fibromyalgia [Not Recovered/Not Resolved]
  - Dizziness [Recovered/Resolved]
  - Ocular hyperaemia [Not Recovered/Not Resolved]
  - Lower respiratory tract infection bacterial [Not Recovered/Not Resolved]
  - Infection [Recovered/Resolved]
  - Nausea [Recovered/Resolved]
  - Asphyxia [Recovered/Resolved]
  - Coagulopathy [Recovered/Resolved]
  - Eye disorder [Recovered/Resolved]
  - Red blood cell sedimentation rate increased [Not Recovered/Not Resolved]

NARRATIVE: CASE EVENT DATE: 2010
